FAERS Safety Report 25101509 (Version 2)
Quarter: 2025Q1

REPORT INFORMATION
  Report Type: Spontaneous
  Country: BE (occurrence: BE)
  Receive Date: 20250320
  Receipt Date: 20250327
  Transmission Date: 20250408
  Serious: Yes (Disabling)
  Sender: PAREXEL
  Company Number: BE-ZAMBON-202500997BEL

PATIENT

DRUGS (2)
  1. FOSFOMYCIN TROMETHAMINE [Suspect]
     Active Substance: FOSFOMYCIN TROMETHAMINE
     Indication: Product used for unknown indication
     Route: 065
     Dates: start: 202501
  2. GABAPENTIN [Suspect]
     Active Substance: GABAPENTIN
     Indication: Product used for unknown indication
     Route: 065

REACTIONS (4)
  - Allodynia [Not Recovered/Not Resolved]
  - Skin burning sensation [Not Recovered/Not Resolved]
  - Pain of skin [Not Recovered/Not Resolved]
  - Product use issue [Unknown]
